FAERS Safety Report 8428646-4 (Version None)
Quarter: 2012Q2

REPORT INFORMATION
  Report Type: 
  Country: None (occurrence: None)
  Receive Date: 20120606
  Receipt Date: 20120522
  Transmission Date: 20120825
  Serious: Yes (Other)
  Sender: FDA-Public Use
  Company Number: DSJ-2012-09374

PATIENT
  Age: 86 Year
  Sex: Female

DRUGS (2)
  1. ANTIHYPERTENSIVE MEDICINE (ANTIHYPERTENSIVES) [Suspect]
     Indication: HYPERTENSION
     Dosage: PER ORAL
     Route: 048
     Dates: start: 20120301, end: 20120101
  2. BENICAR [Suspect]
     Indication: HYPERTENSION
     Dosage: 20 MG (20 MG, 1 IN 1 D), PER ORAL
     Route: 048
     Dates: start: 20100101, end: 20120301

REACTIONS (4)
  - DRUG ADMINISTRATION ERROR [None]
  - BLOOD PRESSURE INCREASED [None]
  - HYPOTENSION [None]
  - SOMNOLENCE [None]
